FAERS Safety Report 8230574-4 (Version None)
Quarter: 2012Q1

REPORT INFORMATION
  Report Type: 
  Country: None (occurrence: None)
  Receive Date: 20120323
  Receipt Date: 20120322
  Transmission Date: 20120608
  Serious: Yes (Other)
  Sender: FDA-Public Use
  Company Number: US-JNJFOC-20120203547

PATIENT
  Sex: Female
  Weight: 108.86 kg

DRUGS (2)
  1. TRAMADOL HCL [Suspect]
     Indication: PAIN
     Dosage: EVERY 4-6 HOURS
     Route: 048
     Dates: start: 20090101, end: 20090101
  2. CYMBALTA [Concomitant]
     Indication: FIBROMYALGIA
     Dosage: 30-60MG DAILY
     Route: 048
     Dates: start: 20080101, end: 20090101

REACTIONS (9)
  - PAIN [None]
  - NEURALGIA [None]
  - COMPLEX REGIONAL PAIN SYNDROME [None]
  - BURNING SENSATION [None]
  - RASH [None]
  - URTICARIA [None]
  - PARAESTHESIA [None]
  - HYPOAESTHESIA [None]
  - LIGAMENT SPRAIN [None]
